FAERS Safety Report 7005777-7 (Version None)
Quarter: 2010Q3

REPORT INFORMATION
  Report Type: 
  Country: None (occurrence: None)
  Receive Date: 20100921
  Receipt Date: 20100908
  Transmission Date: 20110219
  Serious: Yes (Hospitalization)
  Sender: FDA-Public Use
  Company Number: PHHY2010CH56292

PATIENT
  Age: 68 Year
  Sex: Male

DRUGS (8)
  1. SANDIMMUNE [Suspect]
     Indication: LIVER TRANSPLANT
     Dosage: 500 MG, DAILY
     Dates: start: 20091101
  2. SANDIMMUNE [Suspect]
     Dosage: 250 MG, DAILY
  3. CELLCEPT [Suspect]
     Indication: LIVER TRANSPLANT
     Dosage: 4000 MG, DAILY
     Dates: start: 20091101
  4. CELLCEPT [Suspect]
     Dosage: 2000 MG, DAILY
  5. DURAGESIC-100 [Concomitant]
     Dosage: UNK
  6. DAFALGAN [Concomitant]
     Dosage: UNK
  7. MIACALCIN [Concomitant]
     Dosage: UNK
  8. REMERON [Concomitant]
     Dosage: UNK

REACTIONS (9)
  - DECREASED APPETITE [None]
  - DRUG PRESCRIBING ERROR [None]
  - KLEBSIELLA INFECTION [None]
  - LEUKOPENIA [None]
  - NAUSEA [None]
  - OESOPHAGEAL ULCER [None]
  - OESOPHAGITIS ULCERATIVE [None]
  - URINARY TRACT INFECTION BACTERIAL [None]
  - WEIGHT DECREASED [None]
